FAERS Safety Report 5458902-3 (Version None)
Quarter: 2007Q3

REPORT INFORMATION
  Report Type: 
  Country: None (occurrence: None)
  Receive Date: 20070919
  Receipt Date: 20070910
  Transmission Date: 20080115
  Serious: Yes (Death, Hospitalization)
  Sender: FDA-Public Use
  Company Number: MX-AMGEN-US240938

PATIENT
  Sex: Male

DRUGS (8)
  1. PANITUMUMAB [Suspect]
     Indication: COLORECTAL CANCER
     Route: 042
     Dates: start: 20070404, end: 20070716
  2. FLUOROURACIL INJ [Concomitant]
     Route: 042
     Dates: end: 20070717
  3. LOPERAMIDE HCL [Concomitant]
     Route: 065
     Dates: start: 20070723
  4. OXALIPLATIN [Concomitant]
     Route: 042
     Dates: end: 20070717
  5. LEUCOVORIN CALCIUM [Concomitant]
     Route: 065
     Dates: end: 20070717
  6. DICLOFENAC [Concomitant]
     Route: 048
     Dates: start: 20070730
  7. BENZYDAMINE HYDROCHLORIDE [Concomitant]
     Route: 065
     Dates: start: 20070730
  8. ALGINIC ACID/BICARBONATE/CALCIUM CARBONATE [Concomitant]

REACTIONS (1)
  - DISEASE PROGRESSION [None]
